FAERS Safety Report 7006537-3 (Version None)
Quarter: 2010Q3

REPORT INFORMATION
  Report Type: 
  Country: None (occurrence: None)
  Receive Date: 20100921
  Receipt Date: 20100921
  Transmission Date: 20110219
  Serious: Yes (Life-Threatening)
  Sender: FDA-Public Use
  Company Number: None

PATIENT
  Age: 56 Year
  Sex: Female
  Weight: 131.5431 kg

DRUGS (1)
  1. CARVEDILOL [Suspect]
     Indication: HYPERTENSION
     Dosage: 1 TABLET TWICE DAILY

REACTIONS (7)
  - LIMB INJURY [None]
  - NAIL BED BLEEDING [None]
  - OEDEMA PERIPHERAL [None]
  - ONYCHOMADESIS [None]
  - PAIN IN EXTREMITY [None]
  - PERIPHERAL VASCULAR DISORDER [None]
  - SKIN DISCOLOURATION [None]
